FAERS Safety Report 7786042-7 (Version None)
Quarter: 2011Q3

REPORT INFORMATION
  Report Type: 
  Country: None (occurrence: None)
  Receive Date: 20110929
  Receipt Date: 20110922
  Transmission Date: 20111222
  Serious: Yes (Life-Threatening, Hospitalization)
  Sender: FDA-Public Use
  Company Number: FR-TEVA-302440ISR

PATIENT
  Sex: Female

DRUGS (9)
  1. ATARAX [Concomitant]
  2. ETOPOSIDE [Suspect]
     Indication: SMALL CELL CARCINOMA
     Dosage: 100 MG/M2;
     Route: 042
     Dates: start: 20110323, end: 20110323
  3. NEXIUM [Concomitant]
  4. VALSARTAN [Suspect]
     Dosage: 80 MILLIGRAM;
     Route: 048
     Dates: start: 20101001, end: 20110403
  5. LASIX [Suspect]
     Indication: OEDEMA PERIPHERAL
     Dosage: 40 MILLIGRAM;
     Route: 048
     Dates: start: 20110301, end: 20110403
  6. EMEND [Concomitant]
  7. VOGALENE [Concomitant]
  8. CISPLATIN [Suspect]
     Indication: SMALL CELL CARCINOMA
     Dosage: 164 MILLIGRAM;
     Route: 042
     Dates: start: 20110323
  9. SECTRAL [Concomitant]

REACTIONS (3)
  - VOMITING [None]
  - RENAL FAILURE ACUTE [None]
  - DIARRHOEA [None]
